FAERS Safety Report 18441994 (Version 2)
Quarter: 2020Q4

REPORT INFORMATION
  Report Type: Report from Study
  Country: US (occurrence: US)
  Receive Date: 20201029
  Receipt Date: 20201108
  Transmission Date: 20210114
  Serious: Yes (Other)
  Sender: FDA-Public Use
  Company Number: US-BRISTOL-MYERS SQUIBB COMPANY-BMS-2020-087188

PATIENT
  Sex: Female
  Weight: 83.9 kg

DRUGS (2)
  1. WARFARIN SODIUM. [Suspect]
     Active Substance: WARFARIN SODIUM
     Indication: ATRIAL FIBRILLATION
     Dosage: UNK
     Route: 065
     Dates: start: 1993
  2. WARFARIN SODIUM. [Suspect]
     Active Substance: WARFARIN SODIUM
     Dosage: SHE TAKES ONE TABLET ON MONDAY, WEDNESDAY AND FRIDAY AND THEN THE REMAINING DAYS OF THE WEEK SHE TAK
     Route: 048

REACTIONS (4)
  - Headache [Unknown]
  - Neoplasm malignant [Unknown]
  - Fluid retention [Unknown]
  - Dyspnoea [Unknown]
